FAERS Safety Report 4323162-3 (Version None)
Quarter: 2004Q1

REPORT INFORMATION
  Report Type: 
  Country: None (occurrence: None)
  Receive Date: 20040324
  Receipt Date: 20040324
  Transmission Date: 20041129
  Serious: Yes (Other)
  Sender: FDA-Public Use
  Company Number: None

PATIENT
  Age: 55 Year
  Sex: Male

DRUGS (5)
  1. NADOLOL [Suspect]
     Indication: HYPERTENSION
     Dosage: ONE PO QD
     Route: 048
  2. TRIAMTERENE W/ HYDROCHLOROTHIAZIDE [Suspect]
     Indication: HYPERTENSION
     Dosage: ONE PO QD
     Route: 048
  3. INDOMETHACIN [Concomitant]
  4. COLCHICINE [Concomitant]
  5. PROVENTIL [Concomitant]

REACTIONS (3)
  - GOUTY TOPHUS [None]
  - HYPERTENSION [None]
  - PHARMACEUTICAL PRODUCT COMPLAINT [None]
